FAERS Safety Report 16675118 (Version 2)
Quarter: 2019Q3

REPORT INFORMATION
  Report Type: Spontaneous
  Country: JP (occurrence: JP)
  Receive Date: 20190806
  Receipt Date: 20190814
  Transmission Date: 20191004
  Serious: Yes (Hospitalization)
  Sender: FDA-Public Use
  Company Number: JP-JNJFOC-20190803951

PATIENT
  Age: 76 Year
  Sex: Female

DRUGS (1)
  1. HALOMONTH [Suspect]
     Active Substance: HALOPERIDOL DECANOATE
     Indication: PRODUCT USED FOR UNKNOWN INDICATION
     Dosage: HALOPERIDOL DECANOATE: 50 MG/ML
     Route: 030
     Dates: start: 2019

REACTIONS (1)
  - Heat illness [Unknown]

NARRATIVE: CASE EVENT DATE: 20190801
